FAERS Safety Report 7545665-0 (Version None)
Quarter: 2011Q2

REPORT INFORMATION
  Report Type: 
  Country: None (occurrence: None)
  Receive Date: 20110613
  Receipt Date: 20110613
  Transmission Date: 20111010
  Serious: Yes (Hospitalization)
  Sender: FDA-Public Use
  Company Number: None

PATIENT
  Age: 62 Year
  Sex: Male
  Weight: 103 kg

DRUGS (4)
  1. VANCOMYCIN [Suspect]
     Indication: URINARY TRACT INFECTION
     Dosage: 1750 MG BID IV
     Route: 042
     Dates: start: 20110521, end: 20110524
  2. VANCOMYCIN [Suspect]
     Indication: PYREXIA
     Dosage: 1750 MG BID IV
     Route: 042
     Dates: start: 20110521, end: 20110524
  3. PIPERACILLIN AND TAZOBACTAM [Suspect]
     Indication: PYREXIA
     Dosage: 3.375 GM QID IV
     Route: 042
     Dates: start: 20110520, end: 20110524
  4. PIPERACILLIN AND TAZOBACTAM [Suspect]
     Indication: URINARY TRACT INFECTION
     Dosage: 3.375 GM QID IV
     Route: 042
     Dates: start: 20110520, end: 20110524

REACTIONS (4)
  - BLOOD PHOSPHORUS INCREASED [None]
  - ANTIBIOTIC LEVEL BELOW THERAPEUTIC [None]
  - RENAL TUBULAR NECROSIS [None]
  - RENAL FAILURE ACUTE [None]
